FAERS Safety Report 25915447 (Version 1)
Quarter: 2025Q4

REPORT INFORMATION
  Report Type: Spontaneous
  Country: US (occurrence: US)
  Receive Date: 20251013
  Receipt Date: 20251013
  Transmission Date: 20260117
  Serious: Yes (Hospitalization)
  Sender: AMGEN
  Company Number: US-AMGEN-USASP2025201155

PATIENT
  Age: 2 Month
  Sex: Female

DRUGS (2)
  1. PREDNISONE [Suspect]
     Active Substance: PREDNISONE
     Indication: Langerhans^ cell histiocytosis
     Dosage: UNK
     Route: 048
  2. VINBLASTINE [Suspect]
     Active Substance: VINBLASTINE
     Indication: Langerhans^ cell histiocytosis
     Route: 065

REACTIONS (5)
  - Langerhans^ cell histiocytosis [Recovering/Resolving]
  - Neutropenia [Unknown]
  - Haematotoxicity [Unknown]
  - Drug effective for unapproved indication [Unknown]
  - Off label use [Unknown]
